FAERS Safety Report 12240197 (Version 1)
Quarter: 2016Q2

REPORT INFORMATION
  Report Type: Spontaneous
  Country: SA (occurrence: SA)
  Receive Date: 20160405
  Receipt Date: 20160405
  Transmission Date: 20160815
  Serious: Yes (Hospitalization)
  Sender: FDA-Public Use
  Company Number: SA-ASTRAZENECA-2016SE35025

PATIENT
  Sex: Female

DRUGS (2)
  1. GALVUS [Concomitant]
     Active Substance: VILDAGLIPTIN
  2. BYETTA [Suspect]
     Active Substance: EXENATIDE
     Indication: DIABETES MELLITUS
     Route: 058

REACTIONS (3)
  - Hyperglycaemia [Unknown]
  - Device defective [Unknown]
  - Drug dose omission [Unknown]
